FAERS Safety Report 12207593 (Version 1)
Quarter: 2016Q1

REPORT INFORMATION
  Report Type: Spontaneous
  Country: US (occurrence: US)
  Receive Date: 20160324
  Receipt Date: 20160324
  Transmission Date: 20160526
  Serious: No
  Sender: FDA-Public Use
  Company Number: US-GLAXOSMITHKLINE-US2016GSK040739

PATIENT
  Age: 73 Year
  Sex: Male

DRUGS (1)
  1. TANZEUM [Suspect]
     Active Substance: ALBIGLUTIDE
     Indication: TYPE 2 DIABETES MELLITUS
     Dosage: 30 MG, WE
     Dates: start: 20160302

REACTIONS (7)
  - Device use error [Unknown]
  - Pain [Unknown]
  - Overdose [Unknown]
  - Product preparation error [Unknown]
  - Confusional state [Unknown]
  - Inappropriate schedule of drug administration [Unknown]
  - Memory impairment [Unknown]

NARRATIVE: CASE EVENT DATE: 201603
